FAERS Safety Report 6927783-0 (Version None)
Quarter: 2010Q3

REPORT INFORMATION
  Report Type: 
  Country: None (occurrence: None)
  Receive Date: 20100817
  Receipt Date: 20100809
  Transmission Date: 20110219
  Serious: Yes (Hospitalization)
  Sender: FDA-Public Use
  Company Number: US-AMGEN-KDL430098

PATIENT
  Sex: Female

DRUGS (3)
  1. ENBREL [Suspect]
     Indication: RHEUMATOID ARTHRITIS
     Dates: start: 20000401
  2. ESTRACE [Concomitant]
  3. CELEBREX [Concomitant]

REACTIONS (3)
  - BLOOD URIC ACID INCREASED [None]
  - PULMONARY THROMBOSIS [None]
  - RHEUMATOID ARTHRITIS [None]
